FAERS Safety Report 11132870 (Version 1)
Quarter: 2015Q2

REPORT INFORMATION
  Report Type: Spontaneous
  Country: US (occurrence: None)
  Receive Date: 20150521
  Receipt Date: 20150521
  Transmission Date: 20150821
  Serious: Yes (Other)
  Sender: FDA-Public Use
  Company Number: None

PATIENT
  Age: 66 Year
  Sex: Male
  Weight: 83.92 kg

DRUGS (19)
  1. TESTOSTERONE CYPIONATE. [Suspect]
     Active Substance: TESTOSTERONE CYPIONATE
     Indication: BLOOD TESTOSTERONE DECREASED
     Dosage: EVERY 6 DAYS
     Route: 030
     Dates: start: 20150412, end: 20150506
  2. NASACORT [Concomitant]
     Active Substance: TRIAMCINOLONE ACETONIDE
  3. IBUPROFEN. [Concomitant]
     Active Substance: IBUPROFEN
  4. MAGNESIUM CITRATE. [Concomitant]
     Active Substance: MAGNESIUM CITRATE
  5. ZYRTEC [Concomitant]
     Active Substance: CETIRIZINE HYDROCHLORIDE
  6. COLACE STOOL SOFTENER [Concomitant]
  7. VITAMIN C [Concomitant]
     Active Substance: ASCORBIC ACID
  8. PROZAC [Concomitant]
     Active Substance: FLUOXETINE HYDROCHLORIDE
  9. MULTIPLE VITAMIN [Concomitant]
     Active Substance: VITAMINS
  10. NIZORAL [Concomitant]
     Active Substance: KETOCONAZOLE
  11. SALMON OIL [Concomitant]
     Active Substance: FISH OIL
  12. PRESERVISION AREDS FORMULA [Concomitant]
  13. CALCIUM CITRATE [Concomitant]
     Active Substance: CALCIUM CITRATE
  14. DEPLIN [Concomitant]
     Active Substance: LEVOMEFOLATE CALCIUM
  15. COENZYME Q10 [Concomitant]
     Active Substance: UBIDECARENONE
  16. VITAMIN D3 [Concomitant]
     Active Substance: CHOLECALCIFEROL
  17. LISINOPRIL. [Concomitant]
     Active Substance: LISINOPRIL
  18. BENSONATATE [Concomitant]
  19. ASPIRIN. [Concomitant]
     Active Substance: ASPIRIN

REACTIONS (6)
  - Pain [None]
  - Asthenia [None]
  - Product quality issue [None]
  - Depression [None]
  - Quality of life decreased [None]
  - Product substitution issue [None]

NARRATIVE: CASE EVENT DATE: 20150508
